FAERS Safety Report 9337196 (Version 3)
Quarter: 2013Q3

REPORT INFORMATION
  Report Type: Spontaneous
  Country: JP (occurrence: JP)
  Receive Date: 20130607
  Receipt Date: 20130716
  Transmission Date: 20140515
  Serious: Yes (Life-Threatening, Hospitalization)
  Sender: FDA-Public Use
  Company Number: JP-PFIZER INC-2013148133

PATIENT
  Age: 80 Year
  Sex: Male

DRUGS (12)
  1. ZOSYN [Suspect]
     Indication: PNEUMONIA
     Dosage: 4.5 G, 3X/DAY
     Route: 041
     Dates: start: 20130104, end: 20130114
  2. NEOLAMIN 3B INJ. [Concomitant]
     Indication: DECREASED APPETITE
     Dosage: 1 A/DAY
     Route: 041
     Dates: start: 20130104, end: 20130117
  3. NORVASC [Concomitant]
     Indication: HYPERTENSION
     Dosage: 2.5 MG/DAY
     Route: 048
     Dates: start: 20110922
  4. LAC B [Concomitant]
     Indication: DIARRHOEA
     Dosage: 3 G/DAY
     Route: 048
     Dates: start: 20130104
  5. EDIROL [Concomitant]
     Indication: HYPOCALCAEMIA
     Dosage: 0.75 UG/DAY
     Route: 048
     Dates: start: 20121101
  6. ASPARA K [Concomitant]
     Indication: HYPOKALAEMIA
     Dosage: 3 DF/DAY
     Route: 048
     Dates: start: 20130104
  7. ODYNE [Concomitant]
     Indication: PROSTATE CANCER METASTATIC
     Dosage: 3 DF/DAY
     Route: 048
  8. ASTOMIN [Concomitant]
     Indication: BRONCHITIS CHRONIC
     Dosage: 1 DF/DAY
     Route: 048
     Dates: start: 20100312, end: 20130104
  9. PLETAAL [Concomitant]
     Indication: PERIPHERAL ARTERIAL OCCLUSIVE DISEASE
     Dosage: 200 MG/DAY
     Route: 048
     Dates: end: 20130104
  10. MAGMITT [Concomitant]
     Indication: CONSTIPATION
     Dosage: 500 MG/DAY
     Route: 048
     Dates: start: 20100312, end: 20130104
  11. MUCODYNE [Concomitant]
     Indication: UPPER RESPIRATORY TRACT INFLAMMATION
     Dosage: 500 MG/DAY
     Route: 048
     Dates: start: 20130102, end: 20130104
  12. MEIACT [Concomitant]
     Indication: UPPER RESPIRATORY TRACT INFLAMMATION
     Dosage: 200 MG/DAY
     Route: 048
     Dates: start: 20130102, end: 20130104

REACTIONS (1)
  - Oculomucocutaneous syndrome [Recovered/Resolved with Sequelae]
